FAERS Safety Report 17600047 (Version 14)
Quarter: 2023Q4

REPORT INFORMATION
  Report Type: Spontaneous
  Country: GB (occurrence: GB)
  Receive Date: 20200330
  Receipt Date: 20231013
  Transmission Date: 20240109
  Serious: Yes (Death, Hospitalization)
  Sender: FDA-Public Use
  Company Number: GB-BIOGEN-2020BI00854405

PATIENT
  Sex: Male

DRUGS (1)
  1. TYSABRI [Suspect]
     Active Substance: NATALIZUMAB
     Indication: Multiple sclerosis
     Dosage: 31 INFUSIONS
     Route: 050
     Dates: start: 201608, end: 202009

REACTIONS (3)
  - Progressive multifocal leukoencephalopathy [Fatal]
  - Multiple sclerosis relapse [Unknown]
  - Immune reconstitution inflammatory syndrome [Unknown]
